FAERS Safety Report 8461963-0 (Version None)
Quarter: 2012Q2

REPORT INFORMATION
  Report Type: 
  Country: None (occurrence: None)
  Receive Date: 20120625
  Receipt Date: 20120618
  Transmission Date: 20120825
  Serious: Yes (Hospitalization)
  Sender: FDA-Public Use
  Company Number: US-BAYER-2011-122697

PATIENT
  Age: 43 Year
  Sex: Female
  Weight: 83.9 kg

DRUGS (7)
  1. METHYLPREDNISOLONE [Concomitant]
     Dosage: 4 MG, UNK
     Route: 048
     Dates: start: 20081122
  2. YAZ [Suspect]
     Dosage: UNK
     Dates: start: 20080101, end: 20081101
  3. IBUPROFEN [Concomitant]
     Dosage: 600 MG, QID
     Route: 048
     Dates: start: 20081122
  4. ACETAMINOPHEN [Concomitant]
  5. NORFLEX [Concomitant]
     Indication: MUSCLE SPASMS
     Dosage: 100 MG, BID
     Route: 048
     Dates: start: 20081126
  6. VALTREX [Concomitant]
     Dosage: 1 G, UNK
     Route: 048
     Dates: start: 20080826, end: 20081218
  7. ZYRTEC [Concomitant]
     Route: 048

REACTIONS (3)
  - PAIN [None]
  - PULMONARY EMBOLISM [None]
  - INJURY [None]
